FAERS Safety Report 6081473-8 (Version None)
Quarter: 2009Q1

REPORT INFORMATION
  Report Type: 
  Country: None (occurrence: None)
  Receive Date: 20090213
  Receipt Date: 20070329
  Transmission Date: 20090719
  Serious: Yes (Life-Threatening, Hospitalization, Other)
  Sender: FDA-Public Use
  Company Number: 530#6#2007-00026

PATIENT
  Sex: Male
  Weight: 70 kg

DRUGS (4)
  1. NEUPRO [Suspect]
     Indication: PARKINSON'S DISEASE
     Dosage: (2 MG QD TRANSDERMAL), (4 MG QD TRANSDERMAL), (6 MG QD TRANSDERMAL), (8 MG QD TRANSDERMAL)
     Route: 062
     Dates: start: 20061207, end: 20061213
  2. NEUPRO [Suspect]
     Indication: PARKINSON'S DISEASE
     Dosage: (2 MG QD TRANSDERMAL), (4 MG QD TRANSDERMAL), (6 MG QD TRANSDERMAL), (8 MG QD TRANSDERMAL)
     Route: 062
     Dates: start: 20061214, end: 20070111
  3. NEUPRO [Suspect]
     Indication: PARKINSON'S DISEASE
     Dosage: (2 MG QD TRANSDERMAL), (4 MG QD TRANSDERMAL), (6 MG QD TRANSDERMAL), (8 MG QD TRANSDERMAL)
     Route: 062
     Dates: start: 20070112, end: 20070903
  4. NEUPRO [Suspect]
     Indication: PARKINSON'S DISEASE
     Dosage: (2 MG QD TRANSDERMAL), (4 MG QD TRANSDERMAL), (6 MG QD TRANSDERMAL), (8 MG QD TRANSDERMAL)
     Route: 062
     Dates: start: 20071204

REACTIONS (3)
  - MYOCARDIAL INFARCTION [None]
  - PNEUMONIA [None]
  - VIRAL INFECTION [None]
